FAERS Safety Report 11461099 (Version 1)
Quarter: 2015Q3

REPORT INFORMATION
  Report Type: Spontaneous
  Country: US (occurrence: US)
  Receive Date: 20150831
  Receipt Date: 20150831
  Transmission Date: 20151125
  Serious: No
  Sender: FDA-Public Use
  Company Number: US-ELI_LILLY_AND_COMPANY-US201004007557

PATIENT
  Age: 46 Year
  Sex: Female
  Weight: 65.76 kg

DRUGS (1)
  1. CYMBALTA [Suspect]
     Active Substance: DULOXETINE HYDROCHLORIDE
     Indication: DEPRESSION
     Dosage: 60 MG, DAILY (1/D)

REACTIONS (5)
  - Headache [Unknown]
  - Facial pain [Not Recovered/Not Resolved]
  - Neck pain [Unknown]
  - Adverse event [Not Recovered/Not Resolved]
  - Neuritis [Unknown]

NARRATIVE: CASE EVENT DATE: 201003
